FAERS Safety Report 6672434-6 (Version None)
Quarter: 2010Q2

REPORT INFORMATION
  Report Type: 
  Country: None (occurrence: None)
  Receive Date: 20100408
  Receipt Date: 20100105
  Transmission Date: 20101027
  Serious: Yes (Death, Other)
  Sender: FDA-Public Use
  Company Number: KR-CELGENEUS-286-20785-10010107

PATIENT

DRUGS (12)
  1. THALOMID [Suspect]
     Indication: MULTIPLE MYELOMA
     Route: 048
  2. THALOMID [Suspect]
     Route: 048
  3. DEXAMETHASONE [Suspect]
     Indication: MULTIPLE MYELOMA
     Route: 048
  4. MELPHALAN HYDROCHLORIDE [Suspect]
     Indication: MULTIPLE MYELOMA
     Route: 048
  5. PREDNISOLONE [Suspect]
     Indication: MULTIPLE MYELOMA
     Route: 048
  6. BORTEZOMIB [Suspect]
     Indication: MULTIPLE MYELOMA
     Route: 040
  7. BORTEZOMIB [Suspect]
     Route: 040
  8. BORTEZOMIB [Suspect]
     Route: 040
  9. ASPIRIN [Concomitant]
     Route: 048
  10. BISPHOSPHONATES [Concomitant]
     Route: 065
  11. ANTIBIOTICS [Concomitant]
     Indication: PROPHYLAXIS
     Route: 065
  12. ANTIFUNGALS [Concomitant]
     Indication: PROPHYLAXIS
     Route: 065

REACTIONS (31)
  - ANAEMIA [None]
  - ASTHENIA [None]
  - CONSTIPATION [None]
  - DECREASED APPETITE [None]
  - DELIRIUM [None]
  - DIARRHOEA [None]
  - DIZZINESS [None]
  - DRUG TOXICITY [None]
  - EMBOLISM [None]
  - FATIGUE [None]
  - HAEMATOTOXICITY [None]
  - HERPES ZOSTER [None]
  - HYPOXIA [None]
  - LEUKOPENIA [None]
  - MALIGNANT NEOPLASM PROGRESSION [None]
  - MULTIPLE MYELOMA [None]
  - NAUSEA [None]
  - NEURALGIA [None]
  - NEUROPATHY PERIPHERAL [None]
  - NEUTROPENIA [None]
  - PERIPHERAL MOTOR NEUROPATHY [None]
  - PERIPHERAL SENSORY NEUROPATHY [None]
  - PNEUMONIA [None]
  - PYREXIA [None]
  - RASH [None]
  - RENAL FAILURE [None]
  - SEPSIS [None]
  - SEPTIC SHOCK [None]
  - THROMBOCYTOPENIA [None]
  - TREMOR [None]
  - VOMITING [None]
